FAERS Safety Report 4442406-0 (Version None)
Quarter: 2004Q3

REPORT INFORMATION
  Report Type: 
  Country: None (occurrence: None)
  Receive Date: 20040903
  Receipt Date: 20040802
  Transmission Date: 20050211
  Serious: Yes (Other)
  Sender: FDA-Public Use
  Company Number: 2004UW16300

PATIENT
  Age: 67 Year
  Sex: Female
  Weight: 76.2043 kg

DRUGS (7)
  1. CRESTOR [Suspect]
     Indication: HYPERCHOLESTEROLAEMIA
     Dosage: 5 MG DAILY PO
     Route: 048
  2. ZETIA [Concomitant]
  3. TOPROL-XL [Concomitant]
  4. COUMADIN [Concomitant]
  5. DIOVAN [Concomitant]
  6. SPIRONOLACTONE [Concomitant]
  7. LEVAQUIN [Concomitant]

REACTIONS (4)
  - ASTHENIA [None]
  - GLOSSITIS [None]
  - SWOLLEN TONGUE [None]
  - TONGUE DISCOLOURATION [None]
